FAERS Safety Report 24871379 (Version 2)
Quarter: 2025Q1

REPORT INFORMATION
  Report Type: Spontaneous
  Country: FR (occurrence: FR)
  Receive Date: 20250122
  Receipt Date: 20250220
  Transmission Date: 20250409
  Serious: Yes (Other)
  Sender: AUROBINDO
  Company Number: FR-AFSSAPS-DJ2025000014

PATIENT
  Age: 14 Year
  Sex: Male

DRUGS (7)
  1. SERTRALINE [Suspect]
     Active Substance: SERTRALINE HYDROCHLORIDE
     Indication: Product use in unapproved indication
     Route: 048
     Dates: start: 20241127
  2. LOXAPINE [Suspect]
     Active Substance: LOXAPINE
     Indication: Product use in unapproved indication
     Route: 048
     Dates: start: 20241127, end: 20241127
  3. BROMAZEPAM [Suspect]
     Active Substance: BROMAZEPAM
     Indication: Product use in unapproved indication
     Route: 048
     Dates: start: 20241127, end: 20241127
  4. TROPATEPINE HYDROCHLORIDE [Suspect]
     Active Substance: TROPATEPINE HYDROCHLORIDE
     Indication: Product use in unapproved indication
     Route: 048
     Dates: start: 20241127, end: 20241127
  5. DESOGESTREL [Suspect]
     Active Substance: DESOGESTREL
     Indication: Product use in unapproved indication
     Route: 048
     Dates: start: 20241127, end: 20241127
  6. DESMOPRESSIN ACETATE [Suspect]
     Active Substance: DESMOPRESSIN ACETATE
     Indication: Product use in unapproved indication
     Route: 048
     Dates: start: 20241127, end: 20241127
  7. LEVOMEPROMAZINE [Suspect]
     Active Substance: LEVOMEPROMAZINE
     Indication: Product use in unapproved indication
     Route: 048
     Dates: start: 20241127, end: 20241127

REACTIONS (2)
  - Wrong patient [Recovered/Resolved]
  - Vomiting [Recovered/Resolved]

NARRATIVE: CASE EVENT DATE: 20241127
